FAERS Safety Report 8541242-3 (Version None)
Quarter: 2012Q3

REPORT INFORMATION
  Report Type: 
  Country: None (occurrence: None)
  Receive Date: 20120716
  Receipt Date: 20120704
  Transmission Date: 20120928
  Serious: No
  Sender: FDA-Public Use
  Company Number: DSA_58306_2012

PATIENT
  Age: 90 Year
  Sex: Female

DRUGS (9)
  1. WARFARIN SODIUM [Suspect]
     Indication: PRODUCT USED FOR UNKNOWN INDICATION
     Dosage: 8 MG, ONCE, ORAL, 2 MG DAILY ORAL
     Route: 048
  2. ATENOLOL [Suspect]
     Indication: PRODUCT USED FOR UNKNOWN INDICATION
     Dosage: 200 MG, ONCE ORAL, (2 MG, DAILY ORAL)
     Route: 048
  3. GLYBURIDE [Suspect]
     Indication: PRODUCT USED FOR UNKNOWN INDICATION
     Dosage: 20 MG ONCE ORAL (5 MG, DAILY, ORAL)
     Route: 048
  4. LISINOPRIL [Suspect]
     Indication: PRODUCT USED FOR UNKNOWN INDICATION
     Dosage: 20 MG, ONCE ORAL (5 MG, DAILY ORAL)
     Route: 048
  5. POTASSIUM CHLORIDE [Suspect]
     Indication: PRODUCT USED FOR UNKNOWN INDICATION
     Dosage: 80 MG ONCE ORAL, (20 MG, DAILY ORAL)
     Route: 048
  6. HYDRALAZINE HCL [Suspect]
     Indication: PRODUCT USED FOR UNKNOWN INDICATION
     Dosage: 100 MG ONCE ORAL (25 MG DAILY ORAL)
     Route: 048
  7. DILTIAZEM HCL [Suspect]
     Indication: PRODUCT USED FOR UNKNOWN INDICATION
     Dosage: 960 MG,ONE ORAL, 240 MG, DAILY, ORAL
     Route: 048
  8. FUROSEMIDE [Suspect]
     Indication: PRODUCT USED FOR UNKNOWN INDICATION
     Dosage: 160 MG, ONCE, ORAL (40 MG, DAILY, ORAL)
     Route: 048
  9. ZAROXOLYN [Suspect]
     Indication: PRODUCT USED FOR UNKNOWN INDICATION
     Dosage: 20 MG ONCE ORAL (5 MG DAILY, ORAL)
     Route: 048

REACTIONS (3)
  - MULTIPLE DRUG OVERDOSE ACCIDENTAL [None]
  - BRADYCARDIA [None]
  - SHOCK [None]
